FAERS Safety Report 5253888-9 (Version None)
Quarter: 2007Q1

REPORT INFORMATION
  Report Type: 
  Country: None (occurrence: None)
  Receive Date: 20070228
  Receipt Date: 20070228
  Transmission Date: 20070707
  Serious: No
  Sender: FDA-Public Use
  Company Number: None

PATIENT
  Age: 82 Year
  Sex: Female
  Weight: 62.5964 kg

DRUGS (1)
  1. REQUIP [Suspect]
     Indication: TREMOR
     Dosage: 5 MG BID PO
     Route: 048

REACTIONS (5)
  - INCORRECT DOSE ADMINISTERED [None]
  - INTERCEPTED DRUG DISPENSING ERROR [None]
  - MEDICATION ERROR [None]
  - NAUSEA [None]
  - VOMITING [None]
